FAERS Safety Report 7552142-X (Version None)
Quarter: 2011Q2

REPORT INFORMATION
  Report Type: 
  Country: None (occurrence: None)
  Receive Date: 20110616
  Receipt Date: 20110526
  Transmission Date: 20111010
  Serious: Yes (Hospitalization, Other)
  Sender: FDA-Public Use
  Company Number: US-BAYER-201034857NA

PATIENT
  Age: 30 Year
  Sex: Female
  Weight: 83.265 kg

DRUGS (8)
  1. YASMIN [Suspect]
     Indication: ACNE
     Dosage: UNK
     Dates: start: 20040101, end: 20050101
  2. YASMIN [Suspect]
     Indication: PREMENSTRUAL SYNDROME
  3. OVCON-35 [Suspect]
  4. NAPROXEN SODIUM [Concomitant]
     Dosage: 550 MG, UNK
  5. OXAPROZIN [Concomitant]
     Dosage: 600 MG, UNK
  6. IBUPROFEN [Concomitant]
     Dosage: 800 MG, UNK
  7. ELAVIL [Concomitant]
     Dosage: 25 MG, BID
     Dates: start: 20070101
  8. PHENERGAN [Concomitant]
     Dosage: 12.5 MG, PRN
     Dates: start: 20070101

REACTIONS (2)
  - VENOUS THROMBOSIS [None]
  - INJURY [None]
